FAERS Safety Report 6575653-2 (Version None)
Quarter: 2010Q1

REPORT INFORMATION
  Report Type: 
  Country: None (occurrence: None)
  Receive Date: 20100202
  Receipt Date: 20100121
  Transmission Date: 20100710
  Serious: Yes (Death)
  Sender: FDA-Public Use
  Company Number: KV200900801

PATIENT
  Age: 66 Year
  Sex: Male
  Weight: 94.4 kg

DRUGS (20)
  1. ISOSORBIDE MONONITRATE (ISOSORBIDE MONONITRATE) SLOW RELEASE [Suspect]
     Indication: DRUG USE FOR UNKNOWN INDICATION
     Dosage: 30 MG, QD, ORAL
     Route: 048
  2. FLOMAX	/00689901/ (MORNIFLUMATE) [Concomitant]
  3. HISTA-VENT (HISTA-VENT) [Concomitant]
  4. CEFTIN [Concomitant]
  5. ALTACE [Concomitant]
  6. AMBIEN [Concomitant]
  7. METFORMIN HCL [Concomitant]
  8. VIOXX [Concomitant]
  9. ARTHO-7 (ARTHO-7) [Concomitant]
  10. CRANBERRY /01512301/ (VACCINIUM MACROCARPON) [Concomitant]
  11. IBUPROFEN [Concomitant]
  12. ZOLOFT [Concomitant]
  13. GLUCOTROL [Concomitant]
  14. VASOTEC  /00574902/ (ENALAPRIL MALEATE) [Concomitant]
  15. ASPIRIN [Concomitant]
  16. CRESTOR [Concomitant]
  17. PLAVIX [Concomitant]
  18. CELEBREX [Concomitant]
  19. LIPITOR [Concomitant]
  20. NITROQUICK (GLYCERYL TRINITRATE) [Concomitant]

REACTIONS (44)
  - ABDOMINAL DISCOMFORT [None]
  - AMNESIA [None]
  - ANGINA PECTORIS [None]
  - ARTHRALGIA [None]
  - BALANCE DISORDER [None]
  - BENIGN PROSTATIC HYPERPLASIA [None]
  - CARBUNCLE [None]
  - CARDIOPULMONARY FAILURE [None]
  - CHEST DISCOMFORT [None]
  - CHEST PAIN [None]
  - CHILLS [None]
  - COORDINATION ABNORMAL [None]
  - CORONARY ARTERY DISEASE [None]
  - COUGH [None]
  - DERMAL CYST [None]
  - DIABETES MELLITUS [None]
  - DIZZINESS [None]
  - FALL [None]
  - FATIGUE [None]
  - GAIT DISTURBANCE [None]
  - HEADACHE [None]
  - HEART RATE DECREASED [None]
  - HEART RATE IRREGULAR [None]
  - HYPERHIDROSIS [None]
  - INNER EAR DISORDER [None]
  - INSOMNIA [None]
  - JOINT SPRAIN [None]
  - JOINT SWELLING [None]
  - MUSCLE STRAIN [None]
  - MUSCULAR WEAKNESS [None]
  - NASAL CONGESTION [None]
  - NASOPHARYNGITIS [None]
  - NOCTURIA [None]
  - PAIN [None]
  - PAIN IN EXTREMITY [None]
  - PALPITATIONS [None]
  - PHARYNGITIS [None]
  - POLLAKIURIA [None]
  - SENSATION OF FOREIGN BODY [None]
  - SNEEZING [None]
  - VENTRICULAR EXTRASYSTOLES [None]
  - VERTIGO [None]
  - VESTIBULAR NEURONITIS [None]
  - WEIGHT DECREASED [None]
